FAERS Safety Report 20061516 (Version 2)
Quarter: 2022Q1

REPORT INFORMATION
  Report Type: Spontaneous
  Country: CA (occurrence: CA)
  Receive Date: 20211112
  Receipt Date: 20220117
  Transmission Date: 20220423
  Serious: Yes (Other)
  Sender: FDA-Public Use
  Company Number: CA-NOVARTISPH-NVSC2021CA255514

PATIENT
  Sex: Female

DRUGS (1)
  1. ERELZI [Suspect]
     Active Substance: ETANERCEPT-SZZS
     Indication: Product used for unknown indication
     Dosage: UNK
     Route: 065
     Dates: start: 202109

REACTIONS (7)
  - Cardiac failure [Unknown]
  - Dyspnoea [Unknown]
  - Asphyxia [Unknown]
  - Oropharyngeal discomfort [Unknown]
  - Abdominal discomfort [Unknown]
  - Eructation [Unknown]
  - Hepatic pain [Unknown]
